FAERS Safety Report 6882701-9 (Version None)
Quarter: 2010Q3

REPORT INFORMATION
  Report Type: 
  Country: None (occurrence: None)
  Receive Date: 20100729
  Receipt Date: 20100721
  Transmission Date: 20110219
  Serious: Yes (Hospitalization)
  Sender: FDA-Public Use
  Company Number: CH-ROCHE-716542

PATIENT
  Sex: Female
  Weight: 65 kg

DRUGS (5)
  1. TRASTUZUMAB [Suspect]
     Dosage: LOADING DOSE
     Route: 042
     Dates: start: 20100420, end: 20100420
  2. TRASTUZUMAB [Suspect]
     Dosage: MAINTANCE DOSE, LAST DOSE PRIOR TO SAE 13 JULY 2010
     Route: 042
  3. PERTUZUMAB [Suspect]
     Dosage: LOADING DOSE.
     Route: 042
     Dates: start: 20100420, end: 20100420
  4. PERTUZUMAB [Suspect]
     Dosage: MAINTANCE DOSE, LAST DOSE PRIOR TO SAE 13 JULY 2010
     Route: 042
  5. DOCETAXEL [Suspect]
     Dosage: LAST DOSE PRIOR TO SAE 13 JULY 2010
     Route: 042
     Dates: start: 20100622

REACTIONS (2)
  - CARDIAC FAILURE [None]
  - HYPOTONIA [None]
